FAERS Safety Report 9593030 (Version 6)
Quarter: 2014Q3

REPORT INFORMATION
  Report Type: Spontaneous
  Country: US (occurrence: None)
  Receive Date: 20131002
  Receipt Date: 20140919
  Transmission Date: 20150326
  Serious: Yes (Death, Hospitalization)
  Sender: FDA-Public Use
  Company Number: 2013SGN00559

PATIENT
  Age: 58 Year
  Sex: Male
  Weight: 82 kg

DRUGS (32)
  1. RITUXIMAB [Suspect]
     Active Substance: RITUXIMAB
     Indication: DIFFUSE LARGE B-CELL LYMPHOMA
     Dosage: 775 MG, Q14D, INTRAVNOUS
     Route: 042
     Dates: start: 20130817, end: 20130908
  2. CITALOPRAM (CITALOPRAM) [Concomitant]
     Active Substance: CITALOPRAM HYDROBROMIDE
  3. ACETAMINOPHEN (ACETAMINOPHEN) [Concomitant]
     Active Substance: ACETAMINOPHEN
  4. ACYCLOVIR (ACYCLOVIR) [Concomitant]
     Active Substance: ACYCLOVIR
  5. CHOLECALCIFEROL (CHOLECALCIFEROL) [Concomitant]
  6. CYANOCOBALAMIN (CYANOCOBALAMIN) [Concomitant]
  7. ONDANSETRON. [Concomitant]
     Active Substance: ONDANSETRON
  8. ALLOPURINOL (ALLOPURINOL) [Concomitant]
     Active Substance: ALLOPURINOL
  9. CALCIUM CARBONATE (CALCIUM CARBONATE) [Concomitant]
  10. SODIUM BICARBONATE (SODIUM BICARBONATE) [Concomitant]
  11. PENTAMIDINE (PENTAMIDINE) [Concomitant]
     Active Substance: PENTAMIDINE
  12. FLUCONAZOLE (FLUCONAZOLE) [Concomitant]
     Active Substance: FLUCONAZOLE
  13. NYSTATIN (NYSTATIN) [Concomitant]
     Active Substance: NYSTATIN
  14. LANSOPRAZOLE (LANSOPRAZOLE) [Concomitant]
     Active Substance: LANSOPRAZOLE
  15. BRENTUXIMAB VEDOTIN [Suspect]
     Active Substance: BRENTUXIMAB VEDOTIN
     Indication: DIFFUSE LARGE B-CELL LYMPHOMA
     Dosage: 1.8 MG/KG, Q21D, INTRAVENOUS
     Route: 042
     Dates: start: 20130817, end: 20130908
  16. LEVOXYL (LEVOTHYROXINE SODIUM) [Concomitant]
  17. ESOMEPRAZOLE (ESOMEPRAZOLE) [Concomitant]
     Active Substance: ESOMEPRAZOLE
  18. METOPROLOL (METOPROLOL) [Concomitant]
     Active Substance: METOPROLOL
  19. PLAQUENIL (HYDROXYCHLOROQUINE SULFATE) [Concomitant]
  20. BUMEX (BUMETANIDE) [Concomitant]
  21. ALTEPLASE (ALTEPLASE) [Concomitant]
     Active Substance: ALTEPLASE
  22. DOCUSATE SODIUM W/SENNA (DOCUSATE SODIUM W/SENNA) [Concomitant]
  23. FILGRASTIM (FILGRASTIM) [Concomitant]
     Active Substance: FILGRASTIM
  24. POTASSIUM ACID PHOSPHATE (POTASSIUM PHOSPHATE MONOBASIC) [Concomitant]
  25. PROCHLORPERAZINE (PROCHLORPERAZINE MALEATE) [Concomitant]
  26. INSULIN GLARGINE (INSULIN GLARGINE) [Concomitant]
     Active Substance: INSULIN GLARGINE
  27. INSULIN LISPRO (INSULIN LISPRO) [Concomitant]
     Active Substance: INSULIN LISPRO
  28. MAGNESIUM SULFATE (MAGNESIUM SULFATE) [Concomitant]
  29. METHYLPREDNISOLONE (METHYLPREDNISOLONE) [Concomitant]
     Active Substance: METHYLPREDNISOLONE
  30. METFORMIN [Concomitant]
     Active Substance: METFORMIN HYDROCHLORIDE
  31. DIPHENHYDRAMINE (DIPHENHYDRAMINE) [Concomitant]
     Active Substance: DIPHENHYDRAMINE
  32. POTASSIUM CHLORIDE (POTASSIUM CHLORIDE) [Concomitant]
     Active Substance: POTASSIUM CHLORIDE

REACTIONS (21)
  - Cholecystitis [None]
  - Toxic epidermal necrolysis [None]
  - Mental status changes [None]
  - Respiratory distress [None]
  - Fall [None]
  - Hypoxia [None]
  - Blood culture positive [None]
  - Fluid overload [None]
  - Thrombocytopenia [None]
  - Renal failure acute [None]
  - Epistaxis [None]
  - Skin abrasion [None]
  - Haematemesis [None]
  - Blood glucose increased [None]
  - Depression [None]
  - Pulmonary oedema [None]
  - Metabolic acidosis [None]
  - Sinus tachycardia [None]
  - Orthostatic hypotension [None]
  - Klebsiella test positive [None]
  - Respiratory failure [None]

NARRATIVE: CASE EVENT DATE: 20130822
